FAERS Safety Report 4304896-3 (Version None)
Quarter: 2004Q1

REPORT INFORMATION
  Report Type: 
  Country: None (occurrence: None)
  Receive Date: 20040226
  Receipt Date: 20040107
  Transmission Date: 20041129
  Serious: No
  Sender: FDA-Public Use
  Company Number: US-GLAXOSMITHKLINE-A0491926A

PATIENT
  Age: 26 Year
  Sex: Female

DRUGS (2)
  1. WELLBUTRIN [Suspect]
     Indication: SYNCOPE
     Dosage: 300MG PER DAY
     Route: 048
     Dates: start: 20031218
  2. RITALIN [Concomitant]

REACTIONS (2)
  - CONTUSION [None]
  - RASH [None]
